FAERS Safety Report 24660926 (Version 1)
Quarter: 2024Q4

REPORT INFORMATION
  Report Type: Spontaneous
  Country: US (occurrence: US)
  Receive Date: 20241125
  Receipt Date: 20241125
  Transmission Date: 20250115
  Serious: No
  Sender: AVADEL CNS PHARMACEUTICALS, LLC
  Company Number: US-AVADEL CNS PHARMACEUTICALS, LLC-2024AVA01973

PATIENT
  Age: 24 Year
  Sex: Female

DRUGS (2)
  1. LUMRYZ [Suspect]
     Active Substance: SODIUM OXYBATE
     Indication: Narcolepsy
     Dosage: 4.5 G, ONCE NIGHTLY AT BEDTIME
     Route: 048
     Dates: start: 20241009, end: 20241011
  2. SUNOSI [Concomitant]
     Active Substance: SOLRIAMFETOL

REACTIONS (9)
  - Screaming [Unknown]
  - Fear [Unknown]
  - Middle insomnia [Unknown]
  - Nightmare [Unknown]
  - Tachyphrenia [Unknown]
  - Anxiety [Unknown]
  - Panic attack [Unknown]
  - Paranoia [Unknown]
  - Confusional state [Unknown]

NARRATIVE: CASE EVENT DATE: 20241001
